FAERS Safety Report 18980917 (Version 1)
Quarter: 2021Q1

REPORT INFORMATION
  Report Type: Spontaneous
  Country: US (occurrence: US)
  Receive Date: 20210308
  Receipt Date: 20210308
  Transmission Date: 20210420
  Serious: Yes (Hospitalization, Other)
  Sender: FDA-Public Use
  Company Number: US-TEVA-2021-US-1885297

PATIENT
  Sex: Female

DRUGS (10)
  1. AMPHOTERICIN B DEOXYCHOLATE [Suspect]
     Active Substance: AMPHOTERICIN B
     Indication: MENINGITIS COCCIDIOIDES
     Route: 037
  2. LIPOSOMAL AMPHOTERICIN B [Suspect]
     Active Substance: AMPHOTERICIN B
     Indication: MENINGITIS COCCIDIOIDES
     Dosage: 5 MG/KG DAILY; THREE TIMES WEEKLY; RE?STARTED THREE TIMES WEEKLY INITIALLY, THEN CONTINUED TWICE WEE
     Route: 042
  3. AMPHOTERICIN B DEOXYCHOLATE [Suspect]
     Active Substance: AMPHOTERICIN B
     Indication: MENINGITIS COCCIDIOIDES
     Dosage: TAPERED INITIALLY THREE TIMES WEEKLY THEN TWICE WEEKLY FOLLOWED BY ONCE WEEKLY OVER THE COURSE OF...
     Route: 037
  4. POSACONAZOLE [Suspect]
     Active Substance: POSACONAZOLE
     Indication: MENINGITIS COCCIDIOIDES
     Dosage: 300 MILLIGRAM DAILY;
     Route: 048
  5. AMPHOTERICIN B DEOXYCHOLATE [Suspect]
     Active Substance: AMPHOTERICIN B
     Indication: MENINGITIS COCCIDIOIDES
     Dosage: OVER THE COURSE OF 6 MONTHS IN TOTAL (TAPERED DOSE)
     Route: 037
  6. FLUCONAZOLE. [Suspect]
     Active Substance: FLUCONAZOLE
     Indication: MENINGITIS COCCIDIOIDES
     Route: 048
  7. AMPHOTERICIN B DEOXYCHOLATE [Suspect]
     Active Substance: AMPHOTERICIN B
     Indication: MENINGITIS COCCIDIOIDES
     Route: 037
  8. AMPHOTERICIN B DEOXYCHOLATE [Suspect]
     Active Substance: AMPHOTERICIN B
     Indication: MENINGITIS COCCIDIOIDES
     Dosage: OVER THE COURSE OF 6 MONTHS IN TOTAL (TAPERED DOSE)
     Route: 037
  9. VORICONAZOLE. [Suspect]
     Active Substance: VORICONAZOLE
     Indication: MENINGITIS COCCIDIOIDES
     Dosage: 320 MILLIGRAM DAILY;
     Route: 048
  10. AMPHOTERICIN B DEOXYCHOLATE [Suspect]
     Active Substance: AMPHOTERICIN B
     Indication: MENINGITIS COCCIDIOIDES
     Dosage: THREE TIMES PER WEEK; ON 2 OCCASIONS
     Route: 037

REACTIONS (2)
  - Neuropathy peripheral [Unknown]
  - Treatment failure [Unknown]
